FAERS Safety Report 9889471 (Version 4)
Quarter: 2014Q3

REPORT INFORMATION
  Report Type: Spontaneous
  Country: US (occurrence: US)
  Receive Date: 20140211
  Receipt Date: 20140908
  Transmission Date: 20150326
  Serious: Yes (Other)
  Sender: FDA-Public Use
  Company Number: US-BRISTOL-MYERS SQUIBB COMPANY-20162624

PATIENT
  Age: 26 Year
  Sex: Female

DRUGS (8)
  1. ABILIFY [Suspect]
     Active Substance: ARIPIPRAZOLE
     Indication: BIPOLAR DISORDER
     Dosage: JAN-2014 DOSE INCREASED TO 10 MG,16DEC13?DECREASED TO 5 MG.?30DEC13-INCREASED TO 5 MG
     Route: 048
     Dates: start: 20131202, end: 20140130
  2. DIVALPROEX [Concomitant]
     Active Substance: DIVALPROEX SODIUM
  3. BUPROPION [Concomitant]
     Active Substance: BUPROPION
     Dates: start: 20140131
  4. KLONOPIN [Concomitant]
     Active Substance: CLONAZEPAM
  5. LITHIUM [Concomitant]
     Active Substance: LITHIUM CARBONATE
  6. ABILIFY MAINTENA [Suspect]
     Active Substance: ARIPIPRAZOLE
     Indication: SCHIZOPHRENIA
     Dosage: 300 MG: 17FEB14
     Route: 030
     Dates: start: 20140120
  7. ABILIFY [Suspect]
     Active Substance: ARIPIPRAZOLE
     Indication: SCHIZOPHRENIA
     Dosage: JAN-2014 DOSE INCREASED TO 10 MG,16DEC13?DECREASED TO 5 MG.?30DEC13-INCREASED TO 5 MG
     Route: 048
     Dates: start: 20131202, end: 20140130
  8. ABILIFY MAINTENA [Suspect]
     Active Substance: ARIPIPRAZOLE
     Indication: BIPOLAR DISORDER
     Dosage: 300 MG: 17FEB14
     Route: 030
     Dates: start: 20140120

REACTIONS (4)
  - Psychotic behaviour [Recovering/Resolving]
  - Paranoia [Unknown]
  - Depression [Recovering/Resolving]
  - Therapeutic response decreased [Recovering/Resolving]

NARRATIVE: CASE EVENT DATE: 201402
